FAERS Safety Report 9695761 (Version 1)
Quarter: 2013Q4

REPORT INFORMATION
  Report Type: Spontaneous
  Country: US (occurrence: None)
  Receive Date: 20131118
  Receipt Date: 20131118
  Transmission Date: 20140711
  Serious: Yes (Disabling)
  Sender: FDA-Public Use
  Company Number: None

PATIENT
  Age: 59 Year
  Sex: Female
  Weight: 58.97 kg

DRUGS (1)
  1. LEVOFLOXACIN [Suspect]
     Indication: VIRAL INFECTION
     Route: 048
     Dates: start: 20120915, end: 20120924

REACTIONS (3)
  - Pain [None]
  - Muscle atrophy [None]
  - Neurological symptom [None]
